FAERS Safety Report 5338790-6 (Version None)
Quarter: 2007Q2

REPORT INFORMATION
  Report Type: 
  Country: None (occurrence: None)
  Receive Date: 20070322
  Receipt Date: 20060724
  Transmission Date: 20071010
  Serious: Yes (Other)
  Sender: FDA-Public Use
  Company Number: 200612449BCC

PATIENT
  Sex: Male
  Weight: 78.0187 kg

DRUGS (3)
  1. ALEVE [Suspect]
     Indication: ARTHRALGIA
     Dosage: 220 MG, BID, ORAL
     Route: 048
  2. METOPROLOL SUCCINATE [Concomitant]
  3. GLIPIZIDE [Concomitant]

REACTIONS (1)
  - DYSPNOEA [None]
